FAERS Safety Report 7985172-4 (Version None)
Quarter: 2011Q4

REPORT INFORMATION
  Report Type: 
  Country: None (occurrence: None)
  Receive Date: 20111216
  Receipt Date: 20111209
  Transmission Date: 20120403
  Serious: Yes (Hospitalization, Other)
  Sender: FDA-Public Use
  Company Number: PHHY2011US69217

PATIENT
  Sex: Male

DRUGS (12)
  1. HYPERSAL [Concomitant]
     Dosage: UNK UKN, UNK
  2. PULMOZYME [Concomitant]
     Dosage: UNK UKN, UNK
  3. TOBI [Suspect]
     Indication: CYSTIC FIBROSIS
     Dosage: 300 MG, BID
  4. ZANTAC [Concomitant]
     Dosage: UNK UKN, UNK
  5. ABELCET [Concomitant]
  6. ZITHROMAX [Concomitant]
  7. PREDNISONE TAB [Concomitant]
     Dosage: 10 MG, UNK
  8. CIPROFLOXACIN [Concomitant]
  9. CREONENZ [Concomitant]
  10. VANCOMYCIN HYCHLORIDE [Concomitant]
  11. PREDNISONE TAB [Concomitant]
     Dosage: 20 MG, QD
  12. ALBUTEROL [Concomitant]

REACTIONS (4)
  - COUGH [None]
  - PULMONARY FUNCTION TEST DECREASED [None]
  - ASPERGILLOSIS [None]
  - EMOTIONAL DISORDER [None]
